FAERS Safety Report 6543212-3 (Version None)
Quarter: 2010Q1

REPORT INFORMATION
  Report Type: 
  Country: None (occurrence: None)
  Receive Date: 20100120
  Receipt Date: 20100108
  Transmission Date: 20100710
  Serious: Yes (Hospitalization)
  Sender: FDA-Public Use
  Company Number: JP-BRISTOL-MYERS SQUIBB COMPANY-14932545

PATIENT
  Age: 84 Year
  Sex: Female

DRUGS (8)
  1. HYDREA [Suspect]
     Indication: THROMBOCYTOPENIA
     Route: 048
  2. ASPIRIN [Concomitant]
     Dosage: TABS
     Route: 048
  3. RANITIDINE HCL [Concomitant]
  4. METOPROLOL TARTRATE [Concomitant]
     Dosage: TABS
     Route: 048
  5. NIFEDIPINE [Concomitant]
     Dosage: TABS
     Route: 048
  6. ISOSORBIDE MONONITRATE [Concomitant]
     Dosage: TABS
     Route: 048
  7. REBAMIPIDE [Concomitant]
     Route: 048
  8. OLMESARTAN MEDOXOMIL [Concomitant]
     Dosage: TABS
     Route: 048

REACTIONS (1)
  - HAEMOLYTIC ANAEMIA [None]
